FAERS Safety Report 8445470-7 (Version None)
Quarter: 2012Q2

REPORT INFORMATION
  Report Type: 
  Country: None (occurrence: None)
  Receive Date: 20120618
  Receipt Date: 20120611
  Transmission Date: 20120825
  Serious: Yes (Hospitalization, Other)
  Sender: FDA-Public Use
  Company Number: PHHY2012FR051012

PATIENT
  Sex: Female

DRUGS (8)
  1. LASIX [Suspect]
     Indication: HYPERTENSION
     Dosage: 1 DF, DAILY
     Dates: start: 20120401, end: 20120509
  2. BISOPROLOL FUMARATE [Concomitant]
  3. TRANXENE [Suspect]
     Indication: BIPOLAR DISORDER
     Dosage: 1 DF, DAILY
     Route: 048
     Dates: start: 20100101, end: 20120509
  4. EUPRESSYL [Concomitant]
     Indication: HYPERTENSION
  5. FLUOXETINE [Suspect]
     Indication: BIPOLAR DISORDER
     Dates: start: 20120401, end: 20120509
  6. NICARDIPINE HYDROCHLORIDE [Suspect]
     Indication: HYPERTENSION
     Dosage: 1 DF, DAILY
     Route: 048
     Dates: start: 20100101, end: 20120509
  7. LITHIUM CARBONATE [Suspect]
     Dosage: 1 DF, DAILY
     Route: 048
     Dates: start: 20100101, end: 20120509
  8. ACETAMINOPHEN [Concomitant]

REACTIONS (6)
  - HUMERUS FRACTURE [None]
  - HYPERCALCAEMIA [None]
  - PNEUMONIA [None]
  - DYSPNOEA [None]
  - GOITRE [None]
  - HYPERPARATHYROIDISM [None]
